FAERS Safety Report 6894896-1 (Version None)
Quarter: 2010Q3

REPORT INFORMATION
  Report Type: 
  Country: None (occurrence: None)
  Receive Date: 20100802
  Receipt Date: 20100720
  Transmission Date: 20110219
  Serious: Yes (Other)
  Sender: FDA-Public Use
  Company Number: PHHY2010BR47926

PATIENT
  Age: 81 Year
  Sex: Male
  Weight: 101 kg

DRUGS (11)
  1. FORADIL [Suspect]
     Indication: ASTHMA
     Dosage: 1 INHALATION 4 TIMES A DAY
  2. FORADIL [Suspect]
     Dosage: 1 INHALATION 5 TIMES A DAY
  3. LASIX [Concomitant]
     Indication: OEDEMA
     Dosage: 1 TABLET/DAY
  4. LASIX [Concomitant]
     Indication: CARDIAC DISORDER
  5. ALDACTONE [Concomitant]
     Indication: CARDIOMEGALY
     Dosage: 1 TABLET/DAY
  6. ALDACTONE [Concomitant]
     Indication: CARDIAC FAILURE
  7. CONCOR [Concomitant]
     Indication: CARDIOMEGALY
     Dosage: 1 TABLET DAILY
  8. CONCOR [Concomitant]
     Indication: CARDIAC FAILURE
  9. DIGOXIN [Concomitant]
     Indication: CARDIAC DISORDER
     Dosage: 1 TABLET DAILY
  10. MAREVAN [Concomitant]
     Indication: ARRHYTHMIA
     Dosage: 1 TABLET/DAY
  11. ENALAPRIL [Concomitant]
     Indication: HYPERTENSION
     Dosage: 1 DF, BID

REACTIONS (10)
  - ASTHMA [None]
  - BLINDNESS [None]
  - CARDIOMEGALY [None]
  - CATARACT [None]
  - CATARACT OPERATION [None]
  - DEPRESSION [None]
  - DIABETES MELLITUS [None]
  - DYSPNOEA [None]
  - INTENTIONAL DRUG MISUSE [None]
  - SALIVA ALTERED [None]
